FAERS Safety Report 13337304 (Version 1)
Quarter: 2017Q1

REPORT INFORMATION
  Report Type: Report from Study
  Country: AU (occurrence: AU)
  Receive Date: 20170315
  Receipt Date: 20170315
  Transmission Date: 20170428
  Serious: Yes (Other)
  Sender: FDA-Public Use
  Company Number: PHHY2017AU033842

PATIENT
  Sex: Male

DRUGS (5)
  1. STI 571 [Suspect]
     Active Substance: IMATINIB
     Indication: CHRONIC GRAFT VERSUS HOST DISEASE
     Dosage: 100 MG, QD
     Route: 048
     Dates: start: 20110809
  2. STI 571 [Suspect]
     Active Substance: IMATINIB
     Dosage: 200 MG, QD
     Route: 048
     Dates: start: 20111013
  3. STI 571 [Suspect]
     Active Substance: IMATINIB
     Dosage: 400 MG, THREE TIMES PER WEEK
     Route: 048
  4. STI 571 [Suspect]
     Active Substance: IMATINIB
     Dosage: 400 MG, QD
     Route: 048
  5. STI 571 [Suspect]
     Active Substance: IMATINIB
     Dosage: 300 MG, QD
     Route: 048

REACTIONS (1)
  - Chronic graft versus host disease [Unknown]
